FAERS Safety Report 7048484-7 (Version None)
Quarter: 2010Q4

REPORT INFORMATION
  Report Type: 
  Country: None (occurrence: None)
  Receive Date: 20101015
  Receipt Date: 20101004
  Transmission Date: 20110411
  Serious: Yes (Hospitalization)
  Sender: FDA-Public Use
  Company Number: KR-GENENTECH-304265

PATIENT
  Sex: Male
  Weight: 70.5 kg

DRUGS (41)
  1. RITUXIMAB [Suspect]
     Indication: DIFFUSE LARGE B-CELL LYMPHOMA
     Dosage: 700 MG, UNK
     Route: 042
     Dates: start: 20100416, end: 20100714
  2. BLINDED BEVACIZUMAB [Suspect]
     Dosage: UNK
     Route: 042
     Dates: start: 20100416, end: 20100714
  3. CYCLOPHOSPHAMIDE [Suspect]
     Dosage: UNK
     Route: 042
     Dates: start: 20100416, end: 20100714
  4. DOXORUBICIN HCL [Suspect]
     Dosage: UNK
     Route: 042
     Dates: start: 20100416, end: 20100714
  5. BLINDED PLACEBO [Suspect]
     Dosage: UNK
     Route: 042
     Dates: start: 20100416, end: 20100714
  6. BLINDED PREDNISONE [Suspect]
     Dosage: UNK
     Route: 042
     Dates: start: 20100416, end: 20100714
  7. BLINDED RITUXIMAB [Suspect]
     Dosage: UNK
     Route: 042
     Dates: start: 20100416, end: 20100714
  8. VINCRISTINE [Suspect]
     Dosage: UNK
     Route: 042
     Dates: start: 20100416, end: 20100714
  9. CYCLOPHOSPHAMIDE [Suspect]
     Indication: DIFFUSE LARGE B-CELL LYMPHOMA
     Dosage: 1400 MG, UNK
     Route: 042
     Dates: start: 20100416
  10. CYCLOPHOSPHAMIDE [Suspect]
     Dosage: UNK
     Route: 042
     Dates: start: 20100721, end: 20100721
  11. DOXORUBICIN HCL [Suspect]
     Indication: DIFFUSE LARGE B-CELL LYMPHOMA
     Dosage: 92 MG, UNK
     Route: 042
     Dates: start: 20100416
  12. DOXORUBICIN HCL [Suspect]
     Dosage: UNK
     Route: 042
     Dates: start: 20100721, end: 20100721
  13. VINCRISTINE [Suspect]
     Indication: DIFFUSE LARGE B-CELL LYMPHOMA
     Dosage: 2 MG, UNK
     Route: 042
     Dates: start: 20100416
  14. VINCRISTINE [Suspect]
     Dosage: UNK
     Route: 042
     Dates: start: 20100721, end: 20100721
  15. PREDNISOLONE [Suspect]
     Indication: DIFFUSE LARGE B-CELL LYMPHOMA
     Dosage: 500 MG, UNK
     Route: 048
     Dates: start: 20100416, end: 20100714
  16. PREDNISOLONE [Suspect]
     Dosage: UNK
     Route: 048
     Dates: start: 20100721, end: 20100725
  17. PREDNISOLONE [Suspect]
     Dosage: UNK
     Dates: start: 20100809, end: 20100809
  18. FAMOTIDINE [Concomitant]
     Indication: PRODUCT USED FOR UNKNOWN INDICATION
     Dosage: UNK
     Dates: start: 20100708, end: 20100720
  19. ATROPINE [Concomitant]
     Indication: PRODUCT USED FOR UNKNOWN INDICATION
     Dosage: UNK
     Dates: start: 20100709, end: 20100709
  20. PETHIDINE HCL [Concomitant]
     Indication: PRODUCT USED FOR UNKNOWN INDICATION
     Dosage: UNK
     Dates: start: 20100709, end: 20100709
  21. PETHIDINE HCL [Concomitant]
     Dosage: UNK
     Dates: start: 20100803, end: 20100803
  22. POVIDONE IODINE [Concomitant]
     Indication: PRODUCT USED FOR UNKNOWN INDICATION
     Dosage: UNK
     Route: 049
     Dates: start: 20100709, end: 20100709
  23. FENTANYL-75 [Concomitant]
     Indication: PRODUCT USED FOR UNKNOWN INDICATION
     Dosage: UNK
     Route: 062
     Dates: start: 20100415
  24. METFORMIN [Concomitant]
     Indication: PRODUCT USED FOR UNKNOWN INDICATION
     Dosage: UNK
     Dates: start: 20100704, end: 20100804
  25. METFORMIN [Concomitant]
     Dosage: UNK
     Dates: start: 20100710, end: 20100731
  26. METFORMIN [Concomitant]
     Dosage: UNK
     Dates: start: 20100805
  27. CLOPIDOGREL [Concomitant]
     Indication: PRODUCT USED FOR UNKNOWN INDICATION
     Dosage: UNK
     Dates: start: 20100711, end: 20100731
  28. AMLODIPINE [Concomitant]
     Indication: PRODUCT USED FOR UNKNOWN INDICATION
     Dosage: UNK
     Dates: start: 20100711, end: 20100731
  29. REBAMIPIDE [Concomitant]
     Indication: PRODUCT USED FOR UNKNOWN INDICATION
     Dosage: UNK
     Dates: start: 20100711, end: 20100731
  30. VILDAGLIPTINE [Concomitant]
     Indication: PRODUCT USED FOR UNKNOWN INDICATION
     Dosage: UNK
     Dates: start: 20100711, end: 20100731
  31. LACTULOSE [Concomitant]
     Indication: PRODUCT USED FOR UNKNOWN INDICATION
     Dosage: UNK
     Dates: start: 20100711, end: 20100711
  32. LACTULOSE [Concomitant]
     Dosage: UNK
     Dates: start: 20100712, end: 20100731
  33. MEGESTROL ACETATE [Concomitant]
     Indication: PRODUCT USED FOR UNKNOWN INDICATION
     Dosage: UNK
     Dates: start: 20100711, end: 20100731
  34. CALCIUM CARBONATE/CHOLECALCIFEROL [Concomitant]
     Indication: PRODUCT USED FOR UNKNOWN INDICATION
     Dosage: 1 UNK, QD
     Dates: start: 20100712, end: 20100731
  35. MAGNESIUM OXIDE [Concomitant]
     Indication: PRODUCT USED FOR UNKNOWN INDICATION
     Dosage: UNK
     Dates: start: 20100802, end: 20100802
  36. MAGNESIUM OXIDE [Concomitant]
     Dosage: 1500 MG, UNK
     Dates: start: 20100803
  37. PIPERACILLIN AND TAZOBACTAM [Concomitant]
     Indication: PRODUCT USED FOR UNKNOWN INDICATION
     Dosage: UNK
     Dates: start: 20100801, end: 20100801
  38. PIPERACILLIN AND TAZOBACTAM [Concomitant]
     Dosage: UNK
     Dates: start: 20100802, end: 20100802
  39. LENOGRASTIM [Concomitant]
     Indication: PRODUCT USED FOR UNKNOWN INDICATION
     Dosage: UNK
     Dates: start: 20100801, end: 20100802
  40. VANCOMYCIN [Concomitant]
     Indication: PRODUCT USED FOR UNKNOWN INDICATION
     Dosage: UNK
     Dates: start: 20100802, end: 20100802
  41. PROPACETAMOL [Concomitant]
     Indication: PRODUCT USED FOR UNKNOWN INDICATION
     Dosage: UNK
     Dates: start: 20100801, end: 20100801

REACTIONS (3)
  - FEBRILE NEUTROPENIA [None]
  - PNEUMONIA [None]
  - TRAUMATIC LUNG INJURY [None]
